FAERS Safety Report 8303536-6 (Version None)
Quarter: 2012Q2

REPORT INFORMATION
  Report Type: 
  Country: None (occurrence: None)
  Receive Date: 20120423
  Receipt Date: 20120416
  Transmission Date: 20120825
  Serious: Yes (Hospitalization)
  Sender: FDA-Public Use
  Company Number: ES-PFIZER INC-2012098678

PATIENT
  Age: 81 Year
  Sex: Female

DRUGS (4)
  1. AMIODARONE HCL [Suspect]
     Dosage: 200 MG, 1X/DAY
     Route: 048
     Dates: start: 20110928, end: 20111010
  2. AMIODARONE HCL [Suspect]
     Indication: ATRIAL FIBRILLATION
     Dosage: 200 MG, 3X/DAY
     Route: 048
     Dates: start: 20110920, end: 20110922
  3. AMIODARONE HCL [Suspect]
     Dosage: 200 G, 2X/DAY
     Route: 048
     Dates: start: 20110923, end: 20110927
  4. AMIODARONE HCL [Concomitant]
     Dosage: UNK, DAILY
     Route: 042
     Dates: start: 20110101, end: 20110101

REACTIONS (2)
  - PNEUMONITIS [None]
  - PLEURAL EFFUSION [None]
